FAERS Safety Report 20671713 (Version 1)
Quarter: 2022Q2

REPORT INFORMATION
  Report Type: Other
  Country: DE (occurrence: DE)
  Receive Date: 20220405
  Receipt Date: 20220405
  Transmission Date: 20220721
  Serious: Yes (Other)
  Sender: FDA-Public Use
  Company Number: DE-DENTSPLY-2022SCDP000070

PATIENT
  Age: 59 Year
  Sex: Male

DRUGS (2)
  1. MEPIVACAINE HYDROCHLORIDE [Suspect]
     Active Substance: MEPIVACAINE HYDROCHLORIDE
     Indication: Biopsy bone
     Dosage: 200 MILLIGRAM OF 10 MG/ML OF MECAIN SOLUTION FOR INJECTION VIAL (PZN 11356289)
     Route: 058
  2. MIDAZOLAM HYDROCHLORIDE [Concomitant]
     Active Substance: MIDAZOLAM HYDROCHLORIDE
     Indication: Biopsy bone
     Dosage: 5 MILLIGRAM OF 5 MG/ML MIDAZOLAM HAMELN SOLUTION FOR INJECTION/INFUSION (PZN 05918501)
     Route: 058

REACTIONS (1)
  - Erythema [Recovered/Resolved]

NARRATIVE: CASE EVENT DATE: 20220217
